FAERS Safety Report 7861221-9 (Version None)
Quarter: 2011Q4

REPORT INFORMATION
  Report Type: 
  Country: None (occurrence: None)
  Receive Date: 20111027
  Receipt Date: 20111017
  Transmission Date: 20120403
  Serious: Yes (Other)
  Sender: FDA-Public Use
  Company Number: US-JNJFOC-20111007720

PATIENT
  Sex: Male

DRUGS (2)
  1. XARELTO [Suspect]
     Indication: OSTEOTOMY
     Route: 048
     Dates: start: 20110101
  2. LOVENOX [Concomitant]
     Indication: ILL-DEFINED DISORDER

REACTIONS (2)
  - WOUND COMPLICATION [None]
  - OEDEMA PERIPHERAL [None]
